FAERS Safety Report 7371200-6 (Version None)
Quarter: 2011Q1

REPORT INFORMATION
  Report Type: 
  Country: None (occurrence: None)
  Receive Date: 20110314
  Receipt Date: 20110228
  Transmission Date: 20110831
  Serious: Yes (Other)
  Sender: FDA-Public Use
  Company Number: 2011SP000712

PATIENT
  Sex: Female

DRUGS (1)
  1. ALVESCO [Suspect]
     Indication: ASTHMA
     Dosage: INHALATION
     Route: 055
     Dates: start: 20110101

REACTIONS (4)
  - ASTHMA [None]
  - CONDITION AGGRAVATED [None]
  - PHARYNGITIS [None]
  - DYSPHONIA [None]
